FAERS Safety Report 5680051-X (Version None)
Quarter: 2008Q1

REPORT INFORMATION
  Report Type: 
  Country: None (occurrence: None)
  Receive Date: 20080325
  Receipt Date: 20080325
  Transmission Date: 20080703
  Serious: Yes (Other)
  Sender: FDA-Public Use
  Company Number: None

PATIENT
  Age: 15 Year
  Sex: Female
  Weight: 52.1637 kg

DRUGS (1)
  1. DELSYM [Suspect]
     Indication: COUGH
     Dosage: 2 TEASPOONS ONCE PO
     Route: 048
     Dates: start: 20080323, end: 20080323

REACTIONS (5)
  - AMNESIA [None]
  - COGNITIVE DISORDER [None]
  - CONFUSIONAL STATE [None]
  - DISORIENTATION [None]
  - FATIGUE [None]
